FAERS Safety Report 13050997 (Version 1)
Quarter: 2016Q4

REPORT INFORMATION
  Report Type: Spontaneous
  Country: US (occurrence: US)
  Receive Date: 20161220
  Receipt Date: 20161220
  Transmission Date: 20170207
  Serious: No
  Sender: FDA-Public Use
  Company Number: None

PATIENT
  Age: 69 Year
  Sex: Male

DRUGS (15)
  1. FLUCONAZOLE. [Concomitant]
     Active Substance: FLUCONAZOLE
  2. MIRTAZAPINE. [Concomitant]
     Active Substance: MIRTAZAPINE
  3. APAP [Concomitant]
     Active Substance: ACETAMINOPHEN
  4. REVLIMID [Suspect]
     Active Substance: LENALIDOMIDE
     Indication: PLASMA CELL MYELOMA
     Route: 048
     Dates: start: 20161130
  5. ASA [Concomitant]
     Active Substance: ASPIRIN
  6. DRONABINOL. [Concomitant]
     Active Substance: DRONABINOL
  7. SILDENAFIL. [Concomitant]
     Active Substance: SILDENAFIL
  8. DEXAMETHASONE. [Concomitant]
     Active Substance: DEXAMETHASONE
  9. NIACIN. [Concomitant]
     Active Substance: NIACIN
  10. SERTRALINE [Concomitant]
     Active Substance: SERTRALINE HYDROCHLORIDE
  11. SENNOSIDES. [Concomitant]
     Active Substance: SENNOSIDES
  12. ASCORBIC ACID. [Concomitant]
     Active Substance: ASCORBIC ACID
  13. TAMSULOSIN [Concomitant]
     Active Substance: TAMSULOSIN
  14. DOCUSATE SODIUM. [Concomitant]
     Active Substance: DOCUSATE SODIUM
  15. FAMOTIDINE. [Concomitant]
     Active Substance: FAMOTIDINE

REACTIONS (3)
  - Pain in extremity [None]
  - Muscle spasms [None]
  - Rash [None]

NARRATIVE: CASE EVENT DATE: 20161213
